FAERS Safety Report 24675391 (Version 1)
Quarter: 2024Q4

REPORT INFORMATION
  Report Type: Spontaneous
  Country: GB (occurrence: GB)
  Receive Date: 20241128
  Receipt Date: 20241128
  Transmission Date: 20250115
  Serious: Yes (Other)
  Sender: SAMSUNG BIOEPIS
  Company Number: None

PATIENT
  Age: 54 Year
  Sex: Female

DRUGS (3)
  1. IMRALDI [Suspect]
     Active Substance: ADALIMUMAB
     Indication: Crohn^s disease
     Dates: start: 2019
  2. IMRALDI [Suspect]
     Active Substance: ADALIMUMAB
  3. ADALIMUMAB [Suspect]
     Active Substance: ADALIMUMAB
     Indication: Crohn^s disease
     Dosage: 40MG EVERY TWO WEEKS. AMGEVITA BRAND.
     Route: 058
     Dates: start: 20240708, end: 20241014

REACTIONS (5)
  - Eye swelling [Unknown]
  - Fatigue [Unknown]
  - Eczema [Unknown]
  - Dry eye [Unknown]
  - Product substitution issue [Unknown]
